FAERS Safety Report 15682109 (Version 1)
Quarter: 2018Q4

REPORT INFORMATION
  Report Type: Spontaneous
  Country: US (occurrence: US)
  Receive Date: 20181203
  Receipt Date: 20181203
  Transmission Date: 20190205
  Serious: No
  Sender: FDA-Public Use
  Company Number: US-ENDO PHARMACEUTICALS INC-2017-008006

PATIENT
  Sex: Female
  Weight: 57.14 kg

DRUGS (1)
  1. FROVA [Suspect]
     Active Substance: FROVATRIPTAN SUCCINATE
     Indication: MIGRAINE
     Dosage: 2.5 MG, ONE TABLET AND A SECOND AS NEEDED
     Route: 065

REACTIONS (6)
  - Aphasia [Unknown]
  - Gait inability [Unknown]
  - Feeling cold [Unknown]
  - Vomiting [Unknown]
  - Feeling abnormal [Unknown]
  - Wrong technique in product usage process [Unknown]
